FAERS Safety Report 4937163-5 (Version None)
Quarter: 2006Q1

REPORT INFORMATION
  Report Type: 
  Country: None (occurrence: None)
  Receive Date: 20060307
  Receipt Date: 20060307
  Transmission Date: 20060701
  Serious: Yes (Other)
  Sender: FDA-Public Use
  Company Number: None

PATIENT
  Age: 45 Year
  Sex: Male

DRUGS (1)
  1. OXYCONTIN [Suspect]
     Indication: NEUROPATHY
     Dosage: 40MG TID
     Dates: start: 20050101

REACTIONS (2)
  - DRUG INEFFECTIVE [None]
  - NAUSEA [None]
